FAERS Safety Report 9025988 (Version 4)
Quarter: 2014Q1

REPORT INFORMATION
  Report Type: Report from Study
  Country: JP (occurrence: JP)
  Receive Date: 20130122
  Receipt Date: 20140128
  Transmission Date: 20141002
  Serious: Yes (Life-Threatening)
  Sender: FDA-Public Use
  Company Number: JP-PFIZER INC-2013021409

PATIENT
  Age: 82 Year
  Sex: Female
  Weight: 48.4 kg

DRUGS (6)
  1. XALKORI [Suspect]
     Indication: NON-SMALL CELL LUNG CANCER
     Dosage: 250 MG, 2X/DAY
     Route: 048
     Dates: start: 20120829, end: 20120908
  2. THYRADIN S [Concomitant]
     Dosage: 75 UG, ONCE DAILY
     Route: 048
  3. ARTIST [Concomitant]
     Dosage: 2.5 MG, 2X/DAY
     Route: 048
  4. SERENACE [Concomitant]
     Dosage: 1.5 MG, ONCE DAILY
     Route: 048
  5. MAGMITT [Concomitant]
     Dosage: 330 MG, 3X/DAY
     Route: 048
     Dates: end: 20121028
  6. SENNOSIDE [Concomitant]
     Dosage: 12 MG, ONCE DAILY
     Route: 048

REACTIONS (1)
  - Aspiration [Recovered/Resolved]
